FAERS Safety Report 12558121 (Version 1)
Quarter: 2016Q3

REPORT INFORMATION
  Report Type: Spontaneous
  Country: US (occurrence: US)
  Receive Date: 20160714
  Receipt Date: 20160714
  Transmission Date: 20161109
  Serious: Yes (Death, Other)
  Sender: FDA-Public Use
  Company Number: US-GILEAD-2016-0222581

PATIENT
  Age: 44 Year
  Sex: Male

DRUGS (3)
  1. HARVONI [Suspect]
     Active Substance: LEDIPASVIR\SOFOSBUVIR
     Indication: HEPATITIS C
     Dosage: UNK
     Route: 065
     Dates: start: 20160506
  2. NEURONTIN [Concomitant]
     Active Substance: GABAPENTIN
  3. SUBOXONE [Concomitant]
     Active Substance: BUPRENORPHINE HYDROCHLORIDE\NALOXONE HYDROCHLORIDE

REACTIONS (4)
  - Cardiac arrest [Fatal]
  - Depressed mood [Not Recovered/Not Resolved]
  - Alcohol use [Not Recovered/Not Resolved]
  - Physical examination abnormal [Unknown]

NARRATIVE: CASE EVENT DATE: 20160615
